FAERS Safety Report 4840737-3 (Version None)
Quarter: 2005Q4

REPORT INFORMATION
  Report Type: 
  Country: None (occurrence: None)
  Receive Date: 20051130
  Receipt Date: 20050209
  Transmission Date: 20060501
  Serious: Yes (Other)
  Sender: FDA-Public Use
  Company Number: 2005SE01450

PATIENT
  Age: 15928 Day
  Sex: Male
  Weight: 74 kg

DRUGS (1)
  1. NEXIUM [Suspect]
     Indication: REFLUX OESOPHAGITIS
     Route: 048
     Dates: start: 20030601

REACTIONS (2)
  - OPTIC NEURITIS [None]
  - SINUSITIS [None]
